FAERS Safety Report 18241353 (Version 1)
Quarter: 2020Q3

REPORT INFORMATION
  Report Type: Spontaneous
  Country: US (occurrence: US)
  Receive Date: 20200908
  Receipt Date: 20200908
  Transmission Date: 20201103
  Serious: No
  Sender: FDA-Public Use
  Company Number: US-BAYER-2020-186710

PATIENT
  Sex: Male

DRUGS (1)
  1. MIRALAX [Suspect]
     Active Substance: POLYETHYLENE GLYCOL 3350
     Indication: ASTHMA
     Dosage: 1 DF
     Route: 047
     Dates: end: 20200902

REACTIONS (3)
  - Expired product administered [Unknown]
  - Product use in unapproved indication [None]
  - Diarrhoea [Unknown]
